FAERS Safety Report 6996491-2 (Version None)
Quarter: 2010Q3

REPORT INFORMATION
  Report Type: 
  Country: None (occurrence: None)
  Receive Date: 20100918
  Receipt Date: 20090309
  Transmission Date: 20110219
  Serious: Yes (Other)
  Sender: FDA-Public Use
  Company Number: US-WYE-H08505009

PATIENT
  Sex: Female

DRUGS (4)
  1. EFFEXOR XR [Suspect]
     Indication: ANXIETY
     Dosage: ^TITRATED UP TO 75 MG DAILY^
     Route: 048
     Dates: start: 20050101
  2. EFFEXOR XR [Suspect]
     Route: 048
     Dates: end: 20090303
  3. EFFEXOR [Suspect]
     Route: 048
     Dates: start: 20090306, end: 20090306
  4. LEVOTHYROXINE [Concomitant]
     Indication: HYPOTHYROIDISM
     Dosage: UNKNOWN

REACTIONS (6)
  - ABNORMAL DREAMS [None]
  - COLD SWEAT [None]
  - DRUG WITHDRAWAL SYNDROME [None]
  - HALLUCINATION [None]
  - HEADACHE [None]
  - PARAESTHESIA [None]
